FAERS Safety Report 7201385-3 (Version None)
Quarter: 2010Q4

REPORT INFORMATION
  Report Type: 
  Country: None (occurrence: None)
  Receive Date: 20101229
  Receipt Date: 20101221
  Transmission Date: 20110411
  Serious: Yes (Hospitalization)
  Sender: FDA-Public Use
  Company Number: GB-JNJFOC-20101207313

PATIENT
  Age: 21 Year
  Sex: Female

DRUGS (5)
  1. PARACETAMOL [Suspect]
  2. PARACETAMOL [Suspect]
     Indication: ARTHRALGIA
  3. CO-CODAMOL [Suspect]
     Indication: ARTHRALGIA
  4. AMOXICILLIN [Suspect]
     Indication: URINARY TRACT INFECTION
  5. ERYTHROMYCIN [Suspect]
     Indication: LOWER RESPIRATORY TRACT INFECTION

REACTIONS (13)
  - BACK PAIN [None]
  - CAESAREAN SECTION [None]
  - DRUG EXPOSURE DURING PREGNANCY [None]
  - DYSPNOEA [None]
  - EATING DISORDER [None]
  - HAEMOPHILUS INFECTION [None]
  - HEADACHE [None]
  - LOWER RESPIRATORY TRACT INFECTION [None]
  - METABOLIC ACIDOSIS [None]
  - MUSCULOSKELETAL CHEST PAIN [None]
  - PYROGLUTAMATE INCREASED [None]
  - URINARY TRACT INFECTION [None]
  - VOMITING [None]
